FAERS Safety Report 19916503 (Version 1)
Quarter: 2021Q4

REPORT INFORMATION
  Report Type: Spontaneous
  Country: US (occurrence: US)
  Receive Date: 20211004
  Receipt Date: 20211004
  Transmission Date: 20220303
  Serious: Yes (Hospitalization)
  Sender: FDA-Public Use
  Company Number: None

PATIENT
  Age: 69 Year
  Sex: Female
  Weight: 42.18 kg

DRUGS (2)
  1. DAPTOMYCIN [Suspect]
     Active Substance: DAPTOMYCIN
     Indication: Pelvic fluid collection
     Dosage: ?          OTHER FREQUENCY:Q48HOURS;
     Route: 042
     Dates: start: 20210826, end: 20210909
  2. MEROPENEM [Suspect]
     Active Substance: MEROPENEM
     Indication: Pelvic fluid collection
     Dosage: ?          OTHER FREQUENCY:Q24HOURS;
     Route: 042
     Dates: start: 20210826, end: 20210909

REACTIONS (2)
  - Rash [None]
  - Pruritus [None]

NARRATIVE: CASE EVENT DATE: 20210909
